FAERS Safety Report 10446537 (Version 3)
Quarter: 2014Q4

REPORT INFORMATION
  Report Type: Spontaneous
  Country: FR (occurrence: FR)
  Receive Date: 20140911
  Receipt Date: 20141212
  Transmission Date: 20150528
  Serious: Yes (Hospitalization)
  Sender: FDA-Public Use
  Company Number: FR-ROCHE-1458299

PATIENT
  Age: 58 Year
  Sex: Male

DRUGS (3)
  1. SOLU-MEDROL [Concomitant]
     Active Substance: METHYLPREDNISOLONE SODIUM SUCCINATE
     Route: 065
     Dates: start: 20140819
  2. YERVOY [Concomitant]
     Active Substance: IPILIMUMAB
     Dosage: RECIEVED FOUR CYCLES (ON 11/MAR/2014, 03/APR/2014, 24/APR/2014 AND 15/APR/2014)
     Route: 065
     Dates: start: 20140311
  3. ZELBORAF [Suspect]
     Active Substance: VEMURAFENIB
     Indication: MALIGNANT MELANOMA
     Dosage: 4 TABLETS DOSAGE FORMS (DF) OF 240 MG IN THE MORNING AND IN THE EVENING.
     Route: 048
     Dates: start: 20140702, end: 20140819

REACTIONS (4)
  - Monocytosis [Recovered/Resolved]
  - Eosinophilia [Recovered/Resolved]
  - Dermatitis exfoliative [Recovering/Resolving]
  - Hepatocellular injury [Recovered/Resolved]

NARRATIVE: CASE EVENT DATE: 20140819
